FAERS Safety Report 12531034 (Version 1)
Quarter: 2016Q3

REPORT INFORMATION
  Report Type: Spontaneous
  Country: TR (occurrence: TR)
  Receive Date: 20160706
  Receipt Date: 20160706
  Transmission Date: 20161109
  Serious: Yes (Hospitalization, Other)
  Sender: FDA-Public Use
  Company Number: TR-PFIZER INC-3271439

PATIENT
  Age: 3 Month
  Weight: 7 kg

DRUGS (1)
  1. VANCOMYCIN HCL [Suspect]
     Active Substance: VANCOMYCIN HYDROCHLORIDE
     Indication: STAPHYLOCOCCAL INFECTION
     Dosage: 40 MG/KG/DAY

REACTIONS (3)
  - Haemangioma congenital [Recovering/Resolving]
  - Necrosis [Recovering/Resolving]
  - Red man syndrome [Recovered/Resolved]
